FAERS Safety Report 5208854-6 (Version None)
Quarter: 2007Q1

REPORT INFORMATION
  Report Type: 
  Country: None (occurrence: None)
  Receive Date: 20070111
  Receipt Date: 20070111
  Transmission Date: 20070707
  Serious: Yes (Death)
  Sender: FDA-Public Use
  Company Number: None

PATIENT
  Sex: Female
  Weight: 120.2032 kg

DRUGS (2)
  1. LAMICTAL [Suspect]
     Indication: EPILEPSY
     Dosage: LAMICTAL QD PO
     Route: 048
     Dates: start: 20060201, end: 20060429
  2. DILANTIN [Suspect]
     Indication: EPILEPSY
     Dosage: DILANTIN BID PO
     Route: 048
     Dates: start: 19900101, end: 20060429

REACTIONS (2)
  - CONVULSION [None]
  - SUDDEN UNEXPLAINED DEATH IN EPILEPSY [None]
